FAERS Safety Report 21628773 (Version 1)
Quarter: 2022Q4

REPORT INFORMATION
  Report Type: Spontaneous
  Country: US (occurrence: US)
  Receive Date: 20221122
  Receipt Date: 20221122
  Transmission Date: 20230113
  Serious: No
  Sender: FDA-Public Use
  Company Number: US-GLENMARK PHARMACEUTICALS-2022GMK072320

PATIENT

DRUGS (2)
  1. CLOBETASOL PROPIONATE [Suspect]
     Active Substance: CLOBETASOL PROPIONATE
     Indication: Skin disorder
     Dosage: UNK, HS FOR 4 WEEKS
     Route: 061
     Dates: end: 20220509
  2. KETOCONAZOLE [Concomitant]
     Active Substance: KETOCONAZOLE
     Indication: Skin disorder
     Dosage: EVERY OTHER DAY
     Route: 061

REACTIONS (5)
  - Flushing [Unknown]
  - Chest pain [Unknown]
  - Feeling hot [Unknown]
  - Product use issue [Unknown]
  - Headache [Unknown]
